FAERS Safety Report 7712083-1 (Version None)
Quarter: 2011Q3

REPORT INFORMATION
  Report Type: 
  Country: None (occurrence: None)
  Receive Date: 20110823
  Receipt Date: 20110809
  Transmission Date: 20111222
  Serious: Yes (Hospitalization)
  Sender: FDA-Public Use
  Company Number: 2011AP001727

PATIENT
  Age: 59 Year
  Sex: Male

DRUGS (3)
  1. ANTIBIOTICS [Concomitant]
  2. TIZANIDINE HYDROCHLORIDE [Suspect]
     Indication: PRODUCT USED FOR UNKNOWN INDICATION
     Dosage: 6 MG;HS
  3. BACLOFEN [Suspect]
     Indication: PRODUCT USED FOR UNKNOWN INDICATION
     Dosage: 40 MG;Q6H; 240 MG;QD; 10 MG;Q6H

REACTIONS (24)
  - DELIRIUM [None]
  - VOMITING [None]
  - HYPOTENSION [None]
  - DRUG WITHDRAWAL SYNDROME [None]
  - NAUSEA [None]
  - POST PROCEDURAL COMPLICATION [None]
  - INTENTIONAL DRUG MISUSE [None]
  - DRUG INTERACTION [None]
  - OSTEOMYELITIS [None]
  - RENAL TUBULAR NECROSIS [None]
  - HALLUCINATION, VISUAL [None]
  - PYREXIA [None]
  - RENAL FAILURE ACUTE [None]
  - EXTRAPYRAMIDAL DISORDER [None]
  - DRUG LEVEL INCREASED [None]
  - AUTONOMIC NERVOUS SYSTEM IMBALANCE [None]
  - TACHYCARDIA [None]
  - EXTRADURAL ABSCESS [None]
  - AGITATION [None]
  - HYPOPHAGIA [None]
  - INCORRECT DOSE ADMINISTERED [None]
  - BLOOD PRESSURE INCREASED [None]
  - COGWHEEL RIGIDITY [None]
  - INTERVERTEBRAL DISC DISORDER [None]
